FAERS Safety Report 9046991 (Version 3)
Quarter: 2013Q2

REPORT INFORMATION
  Report Type: Spontaneous
  Country: BR (occurrence: BR)
  Receive Date: 20130204
  Receipt Date: 20130412
  Transmission Date: 20140414
  Serious: Yes (Hospitalization, Other)
  Sender: FDA-Public Use
  Company Number: PHHY2013BR009481

PATIENT
  Age: 63 Year
  Sex: Male

DRUGS (2)
  1. EXELON [Suspect]
     Dosage: 6 MG, BID
     Dates: start: 2010, end: 2012
  2. ALOIS [Concomitant]
     Indication: DEMENTIA ALZHEIMER^S TYPE
     Dosage: 2 DF, (DAILY)
     Route: 048
     Dates: start: 2007, end: 201208

REACTIONS (7)
  - Abnormal behaviour [Recovering/Resolving]
  - Aggression [Recovering/Resolving]
  - Insomnia [Recovering/Resolving]
  - Hallucination [Not Recovered/Not Resolved]
  - Humerus fracture [Not Recovered/Not Resolved]
  - Schizophrenia [Not Recovered/Not Resolved]
  - Convulsion [Recovered/Resolved]
